FAERS Safety Report 24232065 (Version 1)
Quarter: 2024Q3

REPORT INFORMATION
  Report Type: Spontaneous
  Country: US (occurrence: US)
  Receive Date: 20240821
  Receipt Date: 20240821
  Transmission Date: 20241017
  Serious: Yes (Other)
  Sender: PINE PHARMACEUTICALS - COMPOUNDING
  Company Number: US-Pine Pharmaceuticals, LLC-2160668

PATIENT
  Sex: Female

DRUGS (1)
  1. BEVACIZUMAB [Suspect]
     Active Substance: BEVACIZUMAB
     Indication: Neovascular age-related macular degeneration
     Route: 031
     Dates: start: 20240502

REACTIONS (1)
  - Endophthalmitis [Recovering/Resolving]
